FAERS Safety Report 6795109-1 (Version None)
Quarter: 2010Q2

REPORT INFORMATION
  Report Type: 
  Country: None (occurrence: None)
  Receive Date: 20100625
  Receipt Date: 20100622
  Transmission Date: 20101027
  Serious: Yes (Death, Hospitalization)
  Sender: FDA-Public Use
  Company Number: PHHY2010CA33837

PATIENT
  Sex: Female

DRUGS (5)
  1. ACLASTA [Suspect]
     Indication: OSTEOPOROSIS
     Dosage: 5 M G
     Route: 042
     Dates: start: 20090414
  2. PANTOPRAZOLE [Concomitant]
  3. CELEXA [Concomitant]
     Dosage: 20 MG
  4. VOLTAREN [Concomitant]
  5. OXAZEPAM [Concomitant]

REACTIONS (2)
  - CEREBRAL HAEMORRHAGE [None]
  - HEADACHE [None]
